FAERS Safety Report 6218611-X (Version None)
Quarter: 2009Q2

REPORT INFORMATION
  Report Type: 
  Country: None (occurrence: None)
  Receive Date: 20090608
  Receipt Date: 20090601
  Transmission Date: 20091009
  Serious: Yes (Other)
  Sender: FDA-Public Use
  Company Number: US-AVENTIS-200914655US

PATIENT
  Sex: Male
  Weight: 72.7 kg

DRUGS (6)
  1. LANTUS [Suspect]
     Route: 058
  2. LANTUS [Suspect]
     Route: 058
  3. LOSARTAN POTASSIUM [Concomitant]
  4. HYTRIN [Concomitant]
     Indication: PROSTATIC DISORDER
  5. NOVOLOG [Concomitant]
     Dosage: DOSE: 4-8
  6. SIMVASTATIN [Concomitant]

REACTIONS (1)
  - MACULAR DEGENERATION [None]
